FAERS Safety Report 24227114 (Version 1)
Quarter: 2024Q3

REPORT INFORMATION
  Report Type: Spontaneous
  Country: TW (occurrence: TW)
  Receive Date: 20240820
  Receipt Date: 20240820
  Transmission Date: 20241016
  Serious: Yes (Other)
  Sender: KOWA PHARM
  Company Number: TW-KOWA-24JP002102

PATIENT
  Age: 58 Year
  Sex: Female

DRUGS (1)
  1. LIVALO [Suspect]
     Active Substance: PITAVASTATIN CALCIUM
     Indication: Hyperlipidaemia
     Dosage: UNK, UNK
     Route: 048

REACTIONS (2)
  - Myalgia [Unknown]
  - Chromaturia [Unknown]
